FAERS Safety Report 5702861-2 (Version None)
Quarter: 2008Q2

REPORT INFORMATION
  Report Type: 
  Country: None (occurrence: None)
  Receive Date: 20080410
  Receipt Date: 20080410
  Transmission Date: 20081010
  Serious: Yes (Hospitalization)
  Sender: FDA-Public Use
  Company Number: None

PATIENT
  Sex: Male
  Weight: 123.9 kg

DRUGS (3)
  1. FLUOROURACIL [Suspect]
     Dosage: 6610 MG
  2. LEUCOVORIN CALCIUM [Suspect]
     Dosage: 945 MG
  3. ELOXATIN [Suspect]
     Dosage: 200 MG

REACTIONS (5)
  - CHILLS [None]
  - PAIN [None]
  - PYREXIA [None]
  - RHINORRHOEA [None]
  - WHITE BLOOD CELL COUNT DECREASED [None]
